FAERS Safety Report 9914555 (Version 2)
Quarter: 2014Q1

REPORT INFORMATION
  Report Type: Report from Study
  Country: CO (occurrence: CO)
  Receive Date: 20140220
  Receipt Date: 20140304
  Transmission Date: 20141002
  Serious: Yes (Hospitalization)
  Sender: FDA-Public Use
  Company Number: CO-ASTRAZENECA-2014SE11235

PATIENT
  Age: 22925 Day
  Sex: Male

DRUGS (6)
  1. BRILINTA [Suspect]
     Indication: ISCHAEMIC HEART DISEASE PROPHYLAXIS
     Route: 048
     Dates: start: 20131125
  2. ASA [Concomitant]
  3. METOPROLOL [Concomitant]
  4. LOVASTATIN [Concomitant]
  5. CARVEDILOL [Concomitant]
  6. VASTAREL [Concomitant]
     Dosage: VASTAREL (BRANDED NAME)

REACTIONS (1)
  - Dyspnoea [Recovered/Resolved]
